FAERS Safety Report 13999253 (Version 4)
Quarter: 2021Q3

REPORT INFORMATION
  Report Type: Report from Study
  Country: US (occurrence: US)
  Receive Date: 20170922
  Receipt Date: 20210803
  Transmission Date: 20211014
  Serious: Yes (Hospitalization, Other)
  Sender: FDA-Public Use
  Company Number: US-ROCHE-1961407

PATIENT
  Age: 70 Year
  Sex: Female
  Weight: 100.8 kg

DRUGS (3)
  1. VISMODEGIB. [Suspect]
     Active Substance: VISMODEGIB
     Indication: OVARIAN EPITHELIAL CANCER
     Dosage: ON DAYS 1?28. COURSES REPEAT EVERY 28 DAYS IN THE ABSENCE OF DISEASE PROGRESSION OR UNACCEPTABLE TOX
     Route: 048
     Dates: start: 20170317
  2. VISMODEGIB. [Suspect]
     Active Substance: VISMODEGIB
     Dosage: LAST DOSE PRIOR TO SERIOUS ADVERSE EVENT
     Route: 048
     Dates: start: 20170804
  3. VISMODEGIB. [Suspect]
     Active Substance: VISMODEGIB
     Dosage: FIFTH COURSE OF THERAPY (TOTAL DOSE: 3750)
     Route: 048
     Dates: start: 20170710

REACTIONS (3)
  - Sinus tachycardia [Unknown]
  - Obesity [Unknown]
  - Supraventricular tachycardia [Recovered/Resolved]

NARRATIVE: CASE EVENT DATE: 20170805
